FAERS Safety Report 22028142 (Version 1)
Quarter: 2023Q1

REPORT INFORMATION
  Report Type: Spontaneous
  Country: US (occurrence: None)
  Receive Date: 20230221
  Receipt Date: 20230221
  Transmission Date: 20230417
  Serious: Yes (Hospitalization)
  Sender: FDA-Public Use
  Company Number: None

PATIENT
  Age: 51 Year
  Sex: Female
  Weight: 76.2 kg

DRUGS (1)
  1. XOLAIR [Suspect]
     Active Substance: OMALIZUMAB
     Indication: Idiopathic urticaria
     Dosage: FREQUENCY : MONTHLY;?
     Route: 058
     Dates: start: 20230208, end: 20230208

REACTIONS (1)
  - Angioedema [None]

NARRATIVE: CASE EVENT DATE: 20230213
